FAERS Safety Report 9754134 (Version 1)
Quarter: 2013Q4

REPORT INFORMATION
  Report Type: Spontaneous
  Country: US (occurrence: US)
  Receive Date: 20131213
  Receipt Date: 20131213
  Transmission Date: 20140711
  Serious: No
  Sender: FDA-Public Use
  Company Number: US-GLAXOSMITHKLINE-A1023964A

PATIENT
  Age: 67 Year
  Sex: Female

DRUGS (9)
  1. WALGREENS LOZENGE CHERRY 4 MG [Suspect]
     Indication: EX-TOBACCO USER
     Route: 048
     Dates: start: 201302
  2. OXYCONTIN [Concomitant]
  3. OXYCODONE [Concomitant]
  4. ELAVIL [Concomitant]
  5. LORTAB [Concomitant]
  6. LIPITOR [Concomitant]
  7. BUTALBITAL [Concomitant]
  8. XANAX [Concomitant]
  9. LIDODERM PATCH [Concomitant]

REACTIONS (2)
  - Drug screen positive [Unknown]
  - Drug administration error [Unknown]
